FAERS Safety Report 13368102 (Version 1)
Quarter: 2017Q1

REPORT INFORMATION
  Report Type: Spontaneous
  Country: US (occurrence: US)
  Receive Date: 20170323
  Receipt Date: 20170323
  Transmission Date: 20170429
  Serious: Yes (Death, Hospitalization)
  Sender: FDA-Public Use
  Company Number: None

PATIENT
  Age: 77 Year
  Sex: Female

DRUGS (1)
  1. REVLIMID [Suspect]
     Active Substance: LENALIDOMIDE
     Indication: PLASMA CELL MYELOMA
     Route: 048
     Dates: start: 20170220

REACTIONS (10)
  - Cough [None]
  - Tachycardia [None]
  - Loss of consciousness [None]
  - Sepsis [None]
  - Bradycardia [None]
  - Hypotension [None]
  - Malaise [None]
  - Syncope [None]
  - Pneumonia [None]
  - Cardiac arrest [None]

NARRATIVE: CASE EVENT DATE: 20170311
